FAERS Safety Report 7967427-2 (Version None)
Quarter: 2011Q4

REPORT INFORMATION
  Report Type: 
  Country: None (occurrence: None)
  Receive Date: 20111209
  Receipt Date: 20111202
  Transmission Date: 20120403
  Serious: Yes (Hospitalization, Other)
  Sender: FDA-Public Use
  Company Number: US-JNJFOC-20090301195

PATIENT
  Sex: Female
  Weight: 56.7 kg

DRUGS (43)
  1. LEVAQUIN [Suspect]
     Route: 048
     Dates: start: 20080218
  2. ALBUTEROL [Concomitant]
     Indication: ASTHMA
     Route: 055
     Dates: start: 19910101
  3. VITAMIN D W/VITAMIN E [Concomitant]
     Indication: VITAMIN SUPPLEMENTATION
     Route: 048
  4. ASTELIN [Concomitant]
     Route: 045
  5. VITAMIN B-12 [Concomitant]
  6. AVELOX [Suspect]
     Route: 042
     Dates: start: 20081201, end: 20081201
  7. FOLIC ACID [Concomitant]
     Indication: VITAMIN SUPPLEMENTATION
     Route: 048
     Dates: start: 20080101
  8. MULTI-VITAMINS [Concomitant]
  9. SINGULAIR [Concomitant]
  10. LEVAQUIN [Suspect]
     Route: 042
     Dates: start: 20081212, end: 20081223
  11. LEVAQUIN [Suspect]
     Route: 048
     Dates: start: 20081212, end: 20081223
  12. ADVAIR DISKUS 100/50 [Concomitant]
     Indication: ASTHMA
     Route: 065
     Dates: start: 20070101
  13. VITAMIN B6 [Concomitant]
  14. POTASSIUM ACETATE [Concomitant]
  15. LEVAQUIN [Suspect]
     Route: 042
     Dates: start: 20081212, end: 20081223
  16. MEDROL [Concomitant]
     Indication: CHRONIC OBSTRUCTIVE PULMONARY DISEASE
     Route: 065
     Dates: start: 19710101
  17. KLOR-CON [Concomitant]
     Indication: MINERAL SUPPLEMENTATION
     Route: 048
  18. PROTONIX [Concomitant]
  19. LIPITOR [Concomitant]
  20. LEVAQUIN [Suspect]
     Indication: BRONCHITIS
     Route: 065
     Dates: start: 20071201, end: 20071201
  21. LEVAQUIN [Suspect]
     Route: 042
     Dates: start: 20081212, end: 20081223
  22. LEVAQUIN [Suspect]
     Route: 048
     Dates: start: 20081101, end: 20081201
  23. CORTICOSTEROIDS [Suspect]
     Indication: ASTHMA
     Route: 048
  24. METHYLPREDNISOLONE [Concomitant]
     Indication: CHRONIC OBSTRUCTIVE PULMONARY DISEASE
     Route: 065
     Dates: start: 19710101
  25. SPIRIVA [Concomitant]
     Indication: ASTHMA
     Route: 055
     Dates: start: 20090101
  26. CRESTOR [Concomitant]
     Indication: BLOOD CHOLESTEROL INCREASED
     Route: 048
     Dates: start: 20110801
  27. FISH OIL [Concomitant]
     Indication: NUTRITIONAL SUPPORT
     Route: 065
  28. CALCIUM CARBONATE [Concomitant]
  29. CALCIUM MAGNESIUM [Concomitant]
     Route: 065
  30. GRAPE SEED EXTRACT [Concomitant]
  31. LEVAQUIN [Suspect]
     Route: 048
     Dates: start: 20080218
  32. LEVAQUIN [Suspect]
     Route: 048
     Dates: start: 20080218
  33. AVELOX [Suspect]
     Indication: STATUS ASTHMATICUS
     Route: 042
     Dates: start: 20081201, end: 20081201
  34. ACTONEL [Concomitant]
  35. XOPENEX [Concomitant]
     Route: 055
  36. LEVAQUIN [Suspect]
     Indication: STATUS ASTHMATICUS
     Route: 042
     Dates: start: 20081101, end: 20081101
  37. LEVAQUIN [Suspect]
     Route: 042
     Dates: start: 20081101, end: 20081101
  38. LEVAQUIN [Suspect]
     Route: 048
     Dates: start: 20081212, end: 20081223
  39. QUERCETIN [Concomitant]
  40. LEVAQUIN [Suspect]
     Indication: PNEUMONIA
     Route: 042
     Dates: start: 20081101, end: 20081101
  41. LEVAQUIN [Suspect]
     Indication: PNEUMONIA BACTERIAL
     Route: 048
     Dates: start: 20081212, end: 20081223
  42. AVELOX [Suspect]
     Indication: BRONCHITIS
     Route: 048
     Dates: start: 20081101
  43. ALLEGRA [Concomitant]

REACTIONS (9)
  - BODY HEIGHT DECREASED [None]
  - ROTATOR CUFF SYNDROME [None]
  - INAPPROPRIATE SCHEDULE OF DRUG ADMINISTRATION [None]
  - TENDON RUPTURE [None]
  - GOUT [None]
  - TENDONITIS [None]
  - NEURALGIA [None]
  - JOINT SWELLING [None]
  - OEDEMA PERIPHERAL [None]
